FAERS Safety Report 21329413 (Version 1)
Quarter: 2022Q3

REPORT INFORMATION
  Report Type: Report from Study
  Country: IT (occurrence: IT)
  Receive Date: 20220913
  Receipt Date: 20220913
  Transmission Date: 20221027
  Serious: Yes (Hospitalization)
  Sender: FDA-Public Use
  Company Number: None

PATIENT
  Age: 47 Year
  Sex: Male

DRUGS (6)
  1. ETOPOSIDE [Suspect]
     Active Substance: ETOPOSIDE
     Indication: B-cell lymphoma
     Dosage: FIRST CYCLE OF R-DA-EPOCH CHEMOTHERAPY
     Dates: start: 20220416, end: 20220421
  2. DOXORUBICIN HYDROCHLORIDE [Suspect]
     Active Substance: DOXORUBICIN HYDROCHLORIDE
     Indication: B-cell lymphoma
     Dosage: FIRST CYCLE OF R-DA-EPOCH CHEMOTHERAPY
     Dates: start: 20220416, end: 20220421
  3. CYCLOPHOSPHAMIDE [Suspect]
     Active Substance: CYCLOPHOSPHAMIDE
     Indication: B-cell lymphoma
     Dosage: FIRST CYCLE OF R-DA-EPOCH CHEMOTHERAPY
     Dates: start: 20220416, end: 20220421
  4. RITUXIMAB [Suspect]
     Active Substance: RITUXIMAB
     Indication: B-cell lymphoma
     Dosage: FIRST CYCLE OF R-DA-EPOCH CHEMOTHERAPY
     Dates: start: 20220416, end: 20220421
  5. VINCRISTINE [Suspect]
     Active Substance: VINCRISTINE
     Indication: B-cell lymphoma
     Dosage: FIRST CYCLE OF R-DA-EPOCH CHEMOTHERAPY
     Dates: start: 20220416, end: 20220421
  6. PREDNISONE [Concomitant]
     Active Substance: PREDNISONE
     Indication: B-cell lymphoma
     Dosage: FIRST CYCLE OF R-DA-EPOCH CHEMOTHERAPY
     Dates: start: 20220416, end: 20220421

REACTIONS (3)
  - Colitis [Recovering/Resolving]
  - Enteritis [Recovering/Resolving]
  - Gastrointestinal wall thickening [Recovering/Resolving]

NARRATIVE: CASE EVENT DATE: 20220509
